FAERS Safety Report 9390405 (Version 1)
Quarter: 2013Q3

REPORT INFORMATION
  Report Type: Spontaneous
  Country: AU (occurrence: AU)
  Receive Date: 20130709
  Receipt Date: 20130709
  Transmission Date: 20140515
  Serious: Yes (Death, Hospitalization)
  Sender: FDA-Public Use
  Company Number: PHHY2013AU071329

PATIENT
  Age: 55 Year
  Sex: Female

DRUGS (9)
  1. CICLOSPORIN [Suspect]
     Dosage: 100 MG, BID
  2. AZATHIOPRINE [Concomitant]
     Dosage: 50 MG, QD
  3. PREDNISOLONE [Concomitant]
     Indication: PROPHYLAXIS
     Dosage: 7.5 MG, QD
  4. VALGANCICLOVIR [Concomitant]
     Indication: PROPHYLAXIS
  5. COTRIMOXAZOLE [Concomitant]
     Indication: PROPHYLAXIS
  6. CALCIUM [Concomitant]
     Indication: OSTEOPOROSIS
  7. CHOLECALCIFEROL [Concomitant]
     Indication: OSTEOPOROSIS
  8. ZOLEDRONATE [Concomitant]
     Indication: OSTEOPOROSIS
  9. EZETIMIBE [Concomitant]
     Indication: HYPERCHOLESTEROLAEMIA
     Dosage: 10 MG, QD

REACTIONS (13)
  - Encephalopathy [Fatal]
  - Clumsiness [Fatal]
  - Memory impairment [Fatal]
  - Headache [Fatal]
  - Convulsion [Fatal]
  - Ataxia [Fatal]
  - Tremor [Fatal]
  - Hallucination, visual [Fatal]
  - Delirium [Fatal]
  - Resting tremor [Fatal]
  - Hyperreflexia [Fatal]
  - Status epilepticus [Fatal]
  - Toxicity to various agents [Unknown]
